FAERS Safety Report 9768300 (Version 1)
Quarter: 2013Q4

REPORT INFORMATION
  Report Type: Spontaneous
  Country: FR (occurrence: FR)
  Receive Date: 20131217
  Receipt Date: 20131217
  Transmission Date: 20140711
  Serious: Yes (Hospitalization)
  Sender: FDA-Public Use
  Company Number: FR-ASTRAZENECA-2013SE90760

PATIENT
  Age: 965 Month
  Sex: Female

DRUGS (13)
  1. MOPRAL [Suspect]
     Route: 048
     Dates: end: 20130920
  2. ZOLOFT [Interacting]
     Route: 048
     Dates: start: 20130910, end: 20130920
  3. ZOLOFT [Interacting]
     Route: 048
     Dates: start: 20131015
  4. BIPRETERAX [Interacting]
     Indication: HYPERTENSION
     Route: 048
     Dates: end: 20130920
  5. CARDENSIEL [Suspect]
     Indication: HYPERTENSION
     Route: 048
     Dates: end: 20130920
  6. ZOPICLONE [Suspect]
     Route: 048
     Dates: end: 20130920
  7. ZOPICLONE [Suspect]
     Route: 048
     Dates: start: 20131015
  8. CALTRATE VITAMINE D3 [Suspect]
     Route: 048
     Dates: end: 20130920
  9. CALTRATE VITAMINE D3 [Suspect]
     Dosage: TWICE A MDAY
     Route: 048
     Dates: start: 20131015
  10. LERCAN [Concomitant]
     Indication: HYPERTENSION
     Route: 048
     Dates: end: 20130920
  11. PRAVASTATINE ALTER [Concomitant]
     Dates: end: 20130920
  12. PRAVASTATINE ALTER [Concomitant]
     Dates: start: 20130930
  13. KARDEGIC [Concomitant]
     Route: 048

REACTIONS (2)
  - Drug interaction [Unknown]
  - Inappropriate antidiuretic hormone secretion [Recovered/Resolved]
